FAERS Safety Report 18792171 (Version 1)
Quarter: 2021Q1

REPORT INFORMATION
  Report Type: Spontaneous
  Country: FR (occurrence: FR)
  Receive Date: 20210127
  Receipt Date: 20210127
  Transmission Date: 20210419
  Serious: Yes (Life-Threatening, Hospitalization, Other)
  Sender: FDA-Public Use
  Company Number: FR-SUN PHARMACEUTICAL INDUSTRIES LTD-2021RR-277689

PATIENT
  Age: 48 Year
  Sex: Male
  Weight: 98 kg

DRUGS (5)
  1. IBUPROFEN. [Suspect]
     Active Substance: IBUPROFEN
     Indication: PRODUCT USED FOR UNKNOWN INDICATION
     Dosage: 8 GRAM, IN TOTAL
     Route: 065
  2. KETOPROFEN. [Suspect]
     Active Substance: KETOPROFEN
     Indication: PRODUCT USED FOR UNKNOWN INDICATION
     Dosage: 2 G, IT TOTAL
     Route: 005
  3. COLCHICINE. [Suspect]
     Active Substance: COLCHICINE
     Indication: POLYARTHRITIS
     Dosage: 50 TO 60 MG, IN TOTAL
     Route: 065
  4. PARACETAMOL [Suspect]
     Active Substance: ACETAMINOPHEN
     Indication: PRODUCT USED FOR UNKNOWN INDICATION
     Dosage: 8 TO 16 G, IN TOTAL
     Route: 065
  5. ALLOPURINOL. [Concomitant]
     Active Substance: ALLOPURINOL
     Indication: POLYARTHRITIS
     Dosage: 200 MILLIGRAM, DAILY
     Route: 065

REACTIONS (2)
  - Suicide attempt [Recovered/Resolved]
  - Overdose [Recovered/Resolved]
